FAERS Safety Report 6725071-9 (Version None)
Quarter: 2010Q2

REPORT INFORMATION
  Report Type: 
  Country: None (occurrence: None)
  Receive Date: 20100514
  Receipt Date: 20100512
  Transmission Date: 20101027
  Serious: Yes (Hospitalization, Other)
  Sender: FDA-Public Use
  Company Number: US-ASTRAZENECA-2009UW04221

PATIENT
  Age: 48 Year
  Sex: Male
  Weight: 176.9 kg

DRUGS (41)
  1. SEROQUEL [Suspect]
     Indication: ABNORMAL BEHAVIOUR
     Dosage: 25 MG TO 300 MG
     Route: 048
     Dates: start: 20000701, end: 20080801
  2. SEROQUEL [Suspect]
     Indication: MENTAL DISORDER
     Dosage: 25 MG TO 300 MG
     Route: 048
     Dates: start: 20000701, end: 20080801
  3. SEROQUEL [Suspect]
     Indication: DEPRESSION
     Dosage: 25 MG TO 300 MG
     Route: 048
     Dates: start: 20000701, end: 20080801
  4. SEROQUEL [Suspect]
     Indication: ANXIETY
     Dosage: 25 MG TO 300 MG
     Route: 048
     Dates: start: 20000701, end: 20080801
  5. SEROQUEL [Suspect]
     Dosage: 200 MG TO 900 MG
     Route: 048
     Dates: start: 20040727, end: 20061101
  6. SEROQUEL [Suspect]
     Dosage: 200 MG TO 900 MG
     Route: 048
     Dates: start: 20040727, end: 20061101
  7. SEROQUEL [Suspect]
     Dosage: 200 MG TO 900 MG
     Route: 048
     Dates: start: 20040727, end: 20061101
  8. SEROQUEL [Suspect]
     Dosage: 200 MG TO 900 MG
     Route: 048
     Dates: start: 20040727, end: 20061101
  9. SEROQUEL [Suspect]
     Route: 048
     Dates: start: 20050216
  10. SEROQUEL [Suspect]
     Route: 048
     Dates: start: 20050216
  11. SEROQUEL [Suspect]
     Route: 048
     Dates: start: 20050216
  12. SEROQUEL [Suspect]
     Route: 048
     Dates: start: 20050216
  13. SEROQUEL [Suspect]
     Route: 048
     Dates: start: 20060926
  14. SEROQUEL [Suspect]
     Route: 048
     Dates: start: 20060926
  15. SEROQUEL [Suspect]
     Route: 048
     Dates: start: 20060926
  16. SEROQUEL [Suspect]
     Route: 048
     Dates: start: 20060926
  17. ABILIFY [Concomitant]
     Dates: start: 20010901, end: 20011201
  18. ABILIFY [Concomitant]
     Dates: start: 20040101, end: 20050501
  19. RISPERDAL [Concomitant]
     Dates: start: 20051101
  20. PROZAC [Concomitant]
     Dates: start: 20020101, end: 20020301
  21. CLONAZEPAM [Concomitant]
     Dates: start: 20080401
  22. XANAX [Concomitant]
     Dates: start: 20050801, end: 20080501
  23. XANAX [Concomitant]
     Dosage: 0.5 TO 1 MG
     Dates: start: 20040101, end: 20080101
  24. DEPAKOTE [Concomitant]
     Dosage: 250 MG TO 1500 MG
     Dates: start: 20040727, end: 20080101
  25. DEPAKOTE [Concomitant]
     Dates: start: 20050801, end: 20071101
  26. DEPAKOTE [Concomitant]
     Dates: start: 20080811
  27. EFFEXOR [Concomitant]
     Dosage: 150 MG TO 300 MG
     Dates: start: 20050501, end: 20051001
  28. EFFEXOR [Concomitant]
     Dates: start: 20050801, end: 20051001
  29. LYRICA [Concomitant]
     Dates: start: 20080811
  30. BACLOFEN [Concomitant]
     Dates: start: 20081108
  31. TOPAMAX [Concomitant]
     Dates: start: 20060926
  32. CYMBALTA [Concomitant]
     Dates: start: 20081108
  33. CYMBALTA [Concomitant]
     Dosage: 30 TO 60 MG
     Dates: start: 20070101, end: 20080101
  34. AMBIEN [Concomitant]
     Dates: start: 20081108
  35. CYCLOBENZAPRINE [Concomitant]
     Dates: start: 20060926
  36. GABAPENTIN [Concomitant]
     Dates: start: 20060926
  37. AMITRIPTLINE HYDROCHLORIDE TAB [Concomitant]
     Indication: INSOMNIA
     Dates: start: 20090604
  38. REMERON [Concomitant]
     Dates: start: 20040101
  39. PAXIL [Concomitant]
     Dates: start: 20040101
  40. LEXAPRO [Concomitant]
     Dates: start: 20040101, end: 20050501
  41. CELEXA [Concomitant]

REACTIONS (19)
  - ACUTE RESPIRATORY FAILURE [None]
  - CARDIAC DISORDER [None]
  - CARDIOMYOPATHY [None]
  - CONVULSION [None]
  - DIABETIC COMA [None]
  - DIABETIC NEUROPATHY [None]
  - HYPERGLYCAEMIA [None]
  - HYPOGLYCAEMIA [None]
  - LYMPHOEDEMA [None]
  - MENTAL STATUS CHANGES [None]
  - NAUSEA [None]
  - NEUROPATHY PERIPHERAL [None]
  - OBESITY [None]
  - PAIN [None]
  - RHABDOMYOLYSIS [None]
  - SKIN CANDIDA [None]
  - SLEEP APNOEA SYNDROME [None]
  - TYPE 2 DIABETES MELLITUS [None]
  - VOMITING [None]
